FAERS Safety Report 6371329-5 (Version None)
Quarter: 2009Q3

REPORT INFORMATION
  Report Type: 
  Country: None (occurrence: None)
  Receive Date: 20090923
  Receipt Date: 20090914
  Transmission Date: 20100115
  Serious: Yes (Hospitalization, Other)
  Sender: FDA-Public Use
  Company Number: US-ELI_LILLY_AND_COMPANY-US200909003004

PATIENT
  Sex: Female

DRUGS (7)
  1. FORTEO [Suspect]
  2. ZOCOR [Concomitant]
  3. SINGULAIR [Concomitant]
  4. PROTONIX [Concomitant]
  5. TOPAMAX [Concomitant]
  6. PREDNISONE [Concomitant]
  7. KLONOPIN [Concomitant]

REACTIONS (2)
  - ASTHENIA [None]
  - CHRONIC OBSTRUCTIVE PULMONARY DISEASE [None]
